FAERS Safety Report 11278151 (Version 1)
Quarter: 2015Q3

REPORT INFORMATION
  Report Type: Spontaneous
  Country: US (occurrence: US)
  Receive Date: 20150717
  Receipt Date: 20150717
  Transmission Date: 20151125
  Serious: No
  Sender: FDA-Public Use
  Company Number: US-JNJFOC-20150700790

PATIENT
  Age: 78 Year
  Sex: Female
  Weight: 47.17 kg

DRUGS (3)
  1. TYLENOL WITH CODEINE [Suspect]
     Active Substance: ACETAMINOPHEN\CODEINE PHOSPHATE
     Indication: SURGERY
     Dosage: 300MG/30MG/ TABLETS/ 300MG/30MG/ 5 TIMES A DAY/ PO - ORAL
     Route: 048
     Dates: start: 1980
  2. TYLENOL WITH CODEINE [Suspect]
     Active Substance: ACETAMINOPHEN\CODEINE PHOSPHATE
     Indication: OSTEOPOROSIS
     Dosage: 300MG/30MG/ TABLETS/ 300MG/30MG/ 5 TIMES A DAY/ PO - ORAL
     Route: 048
     Dates: start: 1980
  3. TYLENOL WITH CODEINE [Suspect]
     Active Substance: ACETAMINOPHEN\CODEINE PHOSPHATE
     Indication: OSTEOARTHRITIS
     Dosage: 300MG/30MG/ TABLETS/ 300MG/30MG/ 5 TIMES A DAY/ PO - ORAL
     Route: 048
     Dates: start: 1980

REACTIONS (1)
  - Drug dose omission [Not Recovered/Not Resolved]

NARRATIVE: CASE EVENT DATE: 20150617
